FAERS Safety Report 8675729 (Version 3)
Quarter: 2013Q1

REPORT INFORMATION
  Report Type: Report from Study
  Country: JP (occurrence: JP)
  Receive Date: 20120720
  Receipt Date: 20130314
  Transmission Date: 20140127
  Serious: Yes (Death, Hospitalization, Disabling)
  Sender: FDA-Public Use
  Company Number: JP-AMGEN-JPNCT2012045069

PATIENT
  Age: 63 Year
  Sex: Male
  Weight: 53 kg

DRUGS (24)
  1. DARBEPOETIN ALFA [Suspect]
     Indication: NEPHROGENIC ANAEMIA
     Dosage: 60 MUG, Q2WK
     Route: 058
     Dates: start: 20101005, end: 20101018
  2. DARBEPOETIN ALFA [Suspect]
     Dosage: 40 MUG, Q2WK
     Route: 058
     Dates: start: 20101102, end: 20101116
  3. DARBEPOETIN ALFA [Suspect]
     Dosage: 30 MUG, Q2WK
     Route: 058
     Dates: start: 20101214, end: 20101228
  4. DARBEPOETIN ALFA [Suspect]
     Dosage: 30 MUG, Q2WK
     Route: 058
     Dates: start: 20110117, end: 20110329
  5. DARBEPOETIN ALFA [Suspect]
     Dosage: 30 MUG, QD
     Route: 058
     Dates: start: 20110411, end: 20110411
  6. DARBEPOETIN ALFA [Suspect]
     Dosage: 20 MUG, Q2WK
     Route: 058
     Dates: start: 20110421, end: 20110523
  7. DARBEPOETIN ALFA [Suspect]
     Dosage: 15 MUG, QD
     Route: 058
     Dates: start: 20110606, end: 20110606
  8. DARBEPOETIN ALFA [Suspect]
     Dosage: 20 MUG, Q2WK
     Route: 058
     Dates: start: 20110620, end: 20110913
  9. DARBEPOETIN ALFA [Suspect]
     Dosage: 20 MUG, QD
     Route: 058
     Dates: start: 20111209, end: 20111209
  10. DARBEPOETIN ALFA [Suspect]
     Dosage: 30 MUG, QD
     Route: 058
     Dates: start: 20120110, end: 20120110
  11. BAYASPIRIN [Concomitant]
     Dosage: UNK
     Route: 048
  12. LASIX [Concomitant]
     Dosage: UNK
     Route: 048
  13. AVAPRO [Concomitant]
     Dosage: UNK
     Route: 048
  14. ADALAT CR [Concomitant]
     Dosage: UNK
     Route: 048
  15. STOGAR [Concomitant]
     Dosage: UNK
     Route: 048
  16. MEVALOTIN [Concomitant]
     Dosage: UNK
     Route: 048
  17. NITOROL R [Concomitant]
     Dosage: UNK
     Route: 048
  18. AMOBAN [Concomitant]
     Dosage: UNK
     Route: 048
  19. SENNOSIDE [Concomitant]
     Dosage: UNK
     Route: 048
  20. CARBADOGEN [Concomitant]
     Dosage: UNK
     Route: 048
  21. FLUITRAN [Concomitant]
     Dosage: UNK
     Route: 048
  22. FRANDOL S [Concomitant]
     Dosage: UNK
     Route: 061
  23. NOVORAPID [Concomitant]
     Dosage: UNK
     Route: 042
  24. KETOBUN A [Concomitant]
     Route: 048

REACTIONS (4)
  - Cardiac failure congestive [Recovered/Resolved]
  - Diabetic gangrene [Recovered/Resolved with Sequelae]
  - Vitreous haemorrhage [Recovering/Resolving]
  - Acute myocardial infarction [Fatal]
